FAERS Safety Report 9843774 (Version 1)
Quarter: 2013Q4

REPORT INFORMATION
  Report Type: Spontaneous
  Country: US (occurrence: None)
  Receive Date: 20131223
  Receipt Date: 20131223
  Transmission Date: 20140711
  Serious: No
  Sender: FDA-Public Use
  Company Number: 1000051042

PATIENT
  Age: 52 Year
  Sex: Female

DRUGS (4)
  1. LINZESS [Suspect]
     Indication: IRRITABLE BOWEL SYNDROME
     Dosage: 290 MCG (290 MCG, 1 IN 1 D), ORAL
     Route: 048
     Dates: start: 201311
  2. NEURONTIN (GABAPENTIN) (GABAPENTIN) [Concomitant]
  3. SOMA (CARISOPRODOL) (CARISOPRODOL) [Concomitant]
  4. ATIVAN (LORAZEPAM) (LORAZEPAM) [Concomitant]

REACTIONS (2)
  - Drug ineffective [None]
  - Heart rate increased [None]
